FAERS Safety Report 9559367 (Version 2)
Quarter: 2014Q1

REPORT INFORMATION
  Report Type: Spontaneous
  Country: US (occurrence: None)
  Receive Date: 20130906
  Receipt Date: 20131205
  Transmission Date: 20141002
  Serious: No
  Sender: FDA-Public Use
  Company Number: 163-POMAL-13074884

PATIENT
  Age: 64 Year
  Sex: Female
  Weight: 63.96 kg

DRUGS (8)
  1. POMALYST (POMALIDOMIDE) (4 MILLIGRAM, CAPSULES) [Suspect]
     Indication: PLASMA CELL MYELOMA
     Route: 048
     Dates: start: 20130701, end: 20130718
  2. ZOMETA (ZOLEDRONIC ACID) [Concomitant]
  3. CALCIUM GLUCONATE [Concomitant]
  4. LACTASE (TILACTASE) [Concomitant]
  5. BABY ASPIRIN (ACETYLSALICYLIC ACID) [Concomitant]
  6. CALCIUM PLUS VITAMIN D (CALCIUM D3 ^STADA^) [Concomitant]
  7. CYANOCOBALAMIN [Concomitant]
  8. DECADRON (DEXAMETHASONE) [Concomitant]

REACTIONS (4)
  - Urticaria [None]
  - Nausea [None]
  - Vomiting [None]
  - Pruritus [None]
